FAERS Safety Report 4691676-2 (Version None)
Quarter: 2005Q2

REPORT INFORMATION
  Report Type: 
  Country: None (occurrence: None)
  Receive Date: 20050616
  Receipt Date: 20050606
  Transmission Date: 20051028
  Serious: Yes (Other)
  Sender: FDA-Public Use
  Company Number: US-JNJFOC-20050602316

PATIENT
  Sex: Male

DRUGS (3)
  1. EXTRA STRENGTH TYLENOL [Suspect]
     Route: 049
  2. EXTRA STRENGTH TYLENOL [Suspect]
     Indication: HANGOVER
     Route: 049
  3. BEER [Suspect]
     Indication: ALCOHOL USE
     Dosage: DRINKS 5-6 BEERS EVERY FRIDAY AND SATURDAY NIGHT
     Route: 049

REACTIONS (3)
  - HEPATIC STEATOSIS [None]
  - INCORRECT DOSE ADMINISTERED [None]
  - PERITONEAL EFFUSION [None]
